FAERS Safety Report 8439836-9 (Version None)
Quarter: 2012Q2

REPORT INFORMATION
  Report Type: 
  Country: None (occurrence: None)
  Receive Date: 20120615
  Receipt Date: 20120612
  Transmission Date: 20120825
  Serious: Yes (Hospitalization)
  Sender: FDA-Public Use
  Company Number: FR-PFIZER INC-2012140694

PATIENT
  Age: 71 Year
  Sex: Female

DRUGS (9)
  1. LASIX [Suspect]
     Dosage: 750 MG, 1X/DAY
     Route: 048
     Dates: start: 20110701, end: 20120401
  2. PREDNISOLONE [Concomitant]
     Dosage: 20 MG, 2X/DAY
     Route: 048
  3. REVATIO [Concomitant]
     Dosage: 20 MG, 3X/DAY
     Route: 048
  4. PREVISCAN [Concomitant]
     Dosage: 10 MG, 1X/DAY
     Route: 048
     Dates: start: 20110601, end: 20120418
  5. ALDACTONE [Suspect]
     Dosage: 25 MG, 1X/DAY
     Route: 048
     Dates: start: 20120301, end: 20120401
  6. POTASSIUM CHLORIDE [Concomitant]
     Dosage: 2 DF, 3X/DAY
     Route: 048
  7. ESIDRIX [Suspect]
     Dosage: 25 MG, 1X/DAY
     Route: 048
     Dates: end: 20120401
  8. PANTOPRAZOLE SODIUM [Concomitant]
     Dosage: 20 MG, 1X/DAY
     Route: 048
  9. DIGOXIN [Concomitant]
     Dosage: 0.25 MG, 1X/DAY
     Route: 048
     Dates: start: 20120301, end: 20120409

REACTIONS (3)
  - DEHYDRATION [None]
  - HYPONATRAEMIA [None]
  - RENAL FAILURE [None]
